FAERS Safety Report 11184534 (Version 2)
Quarter: 2015Q3

REPORT INFORMATION
  Report Type: Spontaneous
  Country: US (occurrence: US)
  Receive Date: 20150612
  Receipt Date: 20150812
  Transmission Date: 20151125
  Serious: No
  Sender: FDA-Public Use
  Company Number: US-PFIZER INC-2015195483

PATIENT
  Sex: Female

DRUGS (3)
  1. LEVOXYL [Suspect]
     Active Substance: LEVOTHYROXINE SODIUM
     Indication: AUTOIMMUNE THYROIDITIS
     Dosage: 25 ?G, 1X/DAY
     Route: 048
  2. BICARBONATE [Suspect]
     Active Substance: BICARBONATE ION
  3. LEVOXYL [Suspect]
     Active Substance: LEVOTHYROXINE SODIUM
     Indication: HYPOTHYROIDISM

REACTIONS (4)
  - Drug ineffective [Unknown]
  - Pharyngeal disorder [Recovered/Resolved]
  - Foaming at mouth [Unknown]
  - Reaction to drug excipients [Unknown]
